FAERS Safety Report 24134110 (Version 1)
Quarter: 2024Q3

REPORT INFORMATION
  Report Type: Report from Study
  Country: US (occurrence: US)
  Receive Date: 20240724
  Receipt Date: 20240724
  Transmission Date: 20241017
  Serious: Yes (Hospitalization)
  Sender: ABBVIE
  Company Number: US-ABBVIE-5666013

PATIENT
  Age: 69 Year
  Sex: Male

DRUGS (7)
  1. SKYRIZI [Suspect]
     Active Substance: RISANKIZUMAB-RZAA
     Indication: Crohn^s disease
     Dosage: 180MG/1.2M?WEEK 12?FORM STRENGTH: 180 MILLIGRAM
     Route: 058
     Dates: start: 20231020, end: 20231020
  2. SKYRIZI [Suspect]
     Active Substance: RISANKIZUMAB-RZAA
     Dosage: 180MG/1.2M?WEEK 28 ?FORM STRENGTH: 180 MILLIGRAM?LAST ADMIN DATE: 2024
     Route: 058
     Dates: start: 20240223
  3. SKYRIZI [Suspect]
     Active Substance: RISANKIZUMAB-RZAA
     Dosage: 180MG/1.2M?WEEK 20 ?FORM STRENGTH: 180 MILLIGRAM
     Route: 058
     Dates: start: 202312, end: 202312
  4. SKYRIZI [Suspect]
     Active Substance: RISANKIZUMAB-RZAA
     Dosage: 180MG/1.2M?FORM STRENGTH: 180 MILLIGRAM
     Route: 058
     Dates: start: 20240711
  5. SKYRIZI [Suspect]
     Active Substance: RISANKIZUMAB-RZAA
     Indication: Crohn^s disease
     Dosage: FORM STRENGTH: 600 MILLIGRAM?WEEK 0
     Route: 042
     Dates: start: 202306, end: 202306
  6. SKYRIZI [Suspect]
     Active Substance: RISANKIZUMAB-RZAA
     Indication: Crohn^s disease
     Dosage: FORM STRENGTH: 600 MILLIGRAM?WEEK 4
     Route: 042
     Dates: start: 202307, end: 202307
  7. SKYRIZI [Suspect]
     Active Substance: RISANKIZUMAB-RZAA
     Indication: Crohn^s disease
     Dosage: FORM STRENGTH: 600 MILLIGRAM?WEEK 8
     Route: 042
     Dates: start: 202308, end: 202308

REACTIONS (4)
  - Coronary artery bypass [Recovering/Resolving]
  - Fatigue [Not Recovered/Not Resolved]
  - Insomnia [Unknown]
  - Asthenia [Not Recovered/Not Resolved]

NARRATIVE: CASE EVENT DATE: 20240201
